FAERS Safety Report 23560225 (Version 1)
Quarter: 2024Q1

REPORT INFORMATION
  Report Type: Spontaneous
  Country: RU (occurrence: None)
  Receive Date: 20240223
  Receipt Date: 20240223
  Transmission Date: 20240410
  Serious: Yes (Life-Threatening, Hospitalization)
  Sender: FDA-Public Use
  Company Number: 2024A043425

PATIENT
  Age: 4 Year

DRUGS (1)
  1. PULMICORT TURBUHALER [Suspect]
     Active Substance: BUDESONIDE
     Indication: Laryngitis
     Dosage: UNKNOWN UNKNOWN
     Route: 055

REACTIONS (2)
  - Asphyxia [Unknown]
  - Drug ineffective [Unknown]
